FAERS Safety Report 14111101 (Version 1)
Quarter: 2017Q4

REPORT INFORMATION
  Report Type: Spontaneous
  Country: FR (occurrence: FR)
  Receive Date: 20171020
  Receipt Date: 20171020
  Transmission Date: 20180321
  Serious: Yes (Other)
  Sender: FDA-Public Use
  Company Number: FR-MYLANLABS-2017M1056544

PATIENT
  Age: 51 Year
  Sex: Male

DRUGS (2)
  1. FONDAPARINUX [Suspect]
     Active Substance: FONDAPARINUX
     Indication: THROMBOSIS
     Dosage: UNK
  2. ORGARAN [Suspect]
     Active Substance: DANAPAROID SODIUM
     Indication: THROMBOSIS
     Dosage: 1250 ANTI-XA IU/ML, TID
     Route: 058

REACTIONS (2)
  - Underdose [Unknown]
  - Drug ineffective [Unknown]
